FAERS Safety Report 14081970 (Version 2)
Quarter: 2025Q3

REPORT INFORMATION
  Report Type: Spontaneous
  Country: EU (occurrence: EU)
  Receive Date: 20171012
  Receipt Date: 20250819
  Transmission Date: 20251020
  Serious: Yes (Hospitalization, Other)
  Sender: MYLAN
  Company Number: EU-MYLANLABS-2017M1063471

PATIENT
  Age: 73 Year
  Sex: Male

DRUGS (8)
  1. MYCOPHENOLATE MOFETIL [Suspect]
     Active Substance: MYCOPHENOLATE MOFETIL
     Indication: Immunosuppressant drug therapy
  2. MYCOPHENOLATE MOFETIL [Suspect]
     Active Substance: MYCOPHENOLATE MOFETIL
     Route: 065
  3. MYCOPHENOLATE MOFETIL [Suspect]
     Active Substance: MYCOPHENOLATE MOFETIL
     Route: 065
  4. MYCOPHENOLATE MOFETIL [Suspect]
     Active Substance: MYCOPHENOLATE MOFETIL
  5. CYCLOSPORINE [Suspect]
     Active Substance: CYCLOSPORINE
     Indication: Immunosuppressant drug therapy
  6. CYCLOSPORINE [Suspect]
     Active Substance: CYCLOSPORINE
     Route: 065
  7. CYCLOSPORINE [Suspect]
     Active Substance: CYCLOSPORINE
     Route: 065
  8. CYCLOSPORINE [Suspect]
     Active Substance: CYCLOSPORINE

REACTIONS (1)
  - Colon neoplasm [Unknown]
